FAERS Safety Report 9242643 (Version 1)
Quarter: 2013Q2

REPORT INFORMATION
  Report Type: Spontaneous
  Country: FR (occurrence: FR)
  Receive Date: 20130419
  Receipt Date: 20130419
  Transmission Date: 20140414
  Serious: Yes (Hospitalization)
  Sender: FDA-Public Use
  Company Number: FR-GLAXOSMITHKLINE-B0883086A

PATIENT
  Age: 81 Year
  Sex: Female

DRUGS (13)
  1. ZOPHREN [Suspect]
     Indication: PRODUCT USED FOR UNKNOWN INDICATION
     Dosage: 4MG TWICE PER DAY
     Route: 048
     Dates: start: 201302, end: 20130212
  2. TAZOCILLINE [Suspect]
     Indication: BACTERIAL INFECTION
     Dosage: 4G THREE TIMES PER DAY
     Route: 042
     Dates: start: 20121207, end: 20130212
  3. COLIMYCINE [Suspect]
     Indication: BACTERIAL INFECTION
     Dosage: 5IU6 TWICE PER DAY
     Route: 042
     Dates: start: 20121207, end: 20130212
  4. FUMAFER [Suspect]
     Dosage: 5MG TWICE PER DAY
     Route: 065
     Dates: start: 20130208, end: 20130212
  5. FOLIC ACID [Suspect]
     Dosage: 5MG TWICE PER DAY
     Route: 048
     Dates: start: 20130208, end: 20130212
  6. ULTRALEVURE [Suspect]
     Route: 048
     Dates: start: 20130208, end: 20130212
  7. SPASFON [Suspect]
     Dosage: 80MG THREE TIMES PER DAY
     Route: 048
     Dates: start: 20130210, end: 20130212
  8. IMOVANE [Suspect]
     Route: 048
     Dates: start: 20130210, end: 20130212
  9. DIDRONEL [Concomitant]
     Route: 042
     Dates: start: 20130206
  10. KARDEGIC [Concomitant]
     Dates: start: 201211
  11. FORTZAAR [Concomitant]
     Dates: start: 201211
  12. PROPRANOLOL [Concomitant]
     Dates: start: 201211
  13. PRAVASTATINE [Concomitant]
     Dates: start: 201211

REACTIONS (4)
  - Eosinophilia [Unknown]
  - Condition aggravated [Unknown]
  - Rash maculo-papular [Unknown]
  - Prurigo [Unknown]
